FAERS Safety Report 7360597-9 (Version None)
Quarter: 2011Q1

REPORT INFORMATION
  Report Type: 
  Country: None (occurrence: None)
  Receive Date: 20110318
  Receipt Date: 20110309
  Transmission Date: 20110831
  Serious: Yes (Other)
  Sender: FDA-Public Use
  Company Number: GB-TEVA-270019ISR

PATIENT
  Age: 37 Year
  Sex: Female

DRUGS (6)
  1. LAMOTRIGINE [Interacting]
     Indication: EPILEPSY
  2. LACOSAMIDE [Interacting]
     Indication: EPILEPSY
  3. PHENYTOIN [Suspect]
     Indication: EPILEPSY
  4. PHENYTOIN [Interacting]
  5. LAMOTRIGINE [Interacting]
  6. RUFINAMIDE [Concomitant]

REACTIONS (5)
  - NEUROTOXICITY [None]
  - BALANCE DISORDER [None]
  - DRUG INTERACTION [None]
  - DIPLOPIA [None]
  - DIZZINESS [None]
